FAERS Safety Report 18494603 (Version 1)
Quarter: 2020Q4

REPORT INFORMATION
  Report Type: Spontaneous
  Country: US (occurrence: US)
  Receive Date: 20201112
  Receipt Date: 20201112
  Transmission Date: 20210114
  Serious: Yes (Death, Other)
  Sender: FDA-Public Use
  Company Number: US-AMGEN-USASP2020180662

PATIENT

DRUGS (7)
  1. FILGRASTIM [Suspect]
     Active Substance: FILGRASTIM
     Indication: NEUTROPENIA
     Dosage: 5 MICROGRAM/KILOGRAM
     Route: 058
  2. CYCLOPHOSPHAMIDE. [Suspect]
     Active Substance: CYCLOPHOSPHAMIDE
     Indication: PROPHYLAXIS
     Dosage: 50 MICROGRAM/KILOGRAM
     Route: 042
  3. LEVOFLOXACIN. [Concomitant]
     Active Substance: LEVOFLOXACIN
     Indication: ANTIBIOTIC PROPHYLAXIS
  4. TACROLIMUS. [Suspect]
     Active Substance: TACROLIMUS
     Indication: PROPHYLAXIS
     Dosage: UNK
     Route: 065
  5. MYCOPHENOLATE MOFETIL. [Suspect]
     Active Substance: MYCOPHENOLATE MOFETIL
     Indication: PROPHYLAXIS
     Dosage: UNK
     Route: 065
  6. ACYCLOVIR [ACICLOVIR] [Concomitant]
     Active Substance: ACYCLOVIR
     Indication: PROPHYLAXIS
     Dosage: 800 MILLIGRAM, BID
  7. FLUCONAZOLE. [Concomitant]
     Active Substance: FLUCONAZOLE
     Indication: ANTIFUNGAL PROPHYLAXIS
     Dosage: UNK

REACTIONS (16)
  - Cerebral aspergillosis [Fatal]
  - Device related sepsis [Unknown]
  - Enterococcal sepsis [Fatal]
  - Peritonitis bacterial [Fatal]
  - Sinusitis aspergillus [Fatal]
  - Bacterial infection [Unknown]
  - Sepsis [Fatal]
  - Fungal infection [Unknown]
  - Cytokine release syndrome [Unknown]
  - Cytomegalovirus infection reactivation [Unknown]
  - Viral infection [Unknown]
  - Infection [Unknown]
  - Human herpesvirus 6 encephalitis [Fatal]
  - Cytomegalovirus viraemia [Unknown]
  - Bronchopulmonary aspergillosis [Fatal]
  - BK virus infection [Unknown]
